FAERS Safety Report 24923587 (Version 2)
Quarter: 2025Q1

REPORT INFORMATION
  Report Type: Spontaneous
  Country: US (occurrence: US)
  Receive Date: 20250204
  Receipt Date: 20250214
  Transmission Date: 20250408
  Serious: No
  Sender: CALLIDITAS THERAPEUTICS AB
  Company Number: US-Calliditas-2025CAL00199

PATIENT
  Age: 55 Year
  Sex: Male

DRUGS (8)
  1. TARPEYO [Suspect]
     Active Substance: BUDESONIDE
     Indication: IgA nephropathy
     Route: 048
     Dates: start: 202205
  2. HYDRALAZINE [Concomitant]
     Active Substance: HYDRALAZINE HYDROCHLORIDE
  3. METOPROLOL [Concomitant]
     Active Substance: METOPROLOL
  4. MINOXIDIL [Concomitant]
     Active Substance: MINOXIDIL
  5. CALCITRIOL [Concomitant]
     Active Substance: CALCITRIOL
  6. LISINOPRIL [Concomitant]
     Active Substance: LISINOPRIL
  7. FUROSEMIDE [Concomitant]
     Active Substance: FUROSEMIDE
  8. SEVELAMER [Concomitant]
     Active Substance: SEVELAMER

REACTIONS (2)
  - Influenza [Unknown]
  - Product dose omission issue [Unknown]
